FAERS Safety Report 11866533 (Version 1)
Quarter: 2015Q4

REPORT INFORMATION
  Report Type: Spontaneous
  Country: AU (occurrence: AU)
  Receive Date: 20151224
  Receipt Date: 20151224
  Transmission Date: 20160305
  Serious: Yes (Death)
  Sender: FDA-Public Use
  Company Number: AU-DRREDDYS-USA/AUS/15/0054960

PATIENT
  Age: 84 Year
  Sex: Female

DRUGS (5)
  1. CLOPIDOGREL [Suspect]
     Active Substance: CLOPIDOGREL BISULFATE
     Indication: ACUTE CORONARY SYNDROME
  2. ACETYLSALICYLIC ACID [Suspect]
     Active Substance: ASPIRIN
     Indication: ACUTE CORONARY SYNDROME
  3. ACETYLSALICYLIC ACID [Suspect]
     Active Substance: ASPIRIN
     Indication: RENAL IMPAIRMENT
  4. CLOPIDOGREL [Suspect]
     Active Substance: CLOPIDOGREL BISULFATE
     Indication: RENAL IMPAIRMENT
  5. CLEXANE [Concomitant]
     Active Substance: ENOXAPARIN SODIUM
     Indication: PULMONARY EMBOLISM

REACTIONS (1)
  - Haematoma [Fatal]
